FAERS Safety Report 18414753 (Version 1)
Quarter: 2020Q4

REPORT INFORMATION
  Report Type: Spontaneous
  Country: US (occurrence: US)
  Receive Date: 20201022
  Receipt Date: 20201022
  Transmission Date: 20210114
  Serious: No
  Sender: FDA-Public Use
  Company Number: None

PATIENT
  Age: 72 Year
  Sex: Male
  Weight: 106 kg

DRUGS (1)
  1. APIXABAN (APIXABAN 5MG TAB) [Suspect]
     Active Substance: APIXABAN
     Indication: ATRIAL FIBRILLATION
     Route: 048
     Dates: start: 20190115, end: 20190225

REACTIONS (4)
  - Peripheral swelling [None]
  - Oedema peripheral [None]
  - Rash pruritic [None]
  - Burning sensation [None]

NARRATIVE: CASE EVENT DATE: 20190115
